FAERS Safety Report 5001127-6 (Version None)
Quarter: 2006Q2

REPORT INFORMATION
  Report Type: 
  Country: None (occurrence: None)
  Receive Date: 20060512
  Receipt Date: 20060403
  Transmission Date: 20061013
  Serious: Yes (Life-Threatening)
  Sender: FDA-Public Use
  Company Number: 2006SE01932

PATIENT
  Age: 27194 Day
  Sex: Female

DRUGS (6)
  1. BLOPRESS [Suspect]
     Indication: HYPERTENSION
     Route: 048
     Dates: start: 20050801, end: 20060328
  2. ATELEC [Concomitant]
     Route: 048
     Dates: start: 20000901
  3. UBRETID [Concomitant]
     Route: 048
  4. MAAREDGE(DRIED ALUMINUM HYDROXIDE GEL/MAGNESIUM HYDROXIDE) [Concomitant]
     Route: 048
  5. LOXONIN [Concomitant]
     Route: 048
  6. ZESTROMIN [Concomitant]
     Route: 048

REACTIONS (2)
  - BRADYARRHYTHMIA [None]
  - HYPERKALAEMIA [None]
